FAERS Safety Report 8307114-4 (Version None)
Quarter: 2012Q2

REPORT INFORMATION
  Report Type: 
  Country: None (occurrence: None)
  Receive Date: 20120424
  Receipt Date: 20120420
  Transmission Date: 20120825
  Serious: Yes (Life-Threatening, Hospitalization)
  Sender: FDA-Public Use
  Company Number: PHHY2011JP88298

PATIENT
  Age: 13 Year
  Sex: Male

DRUGS (12)
  1. GLEEVEC [Suspect]
     Indication: ACUTE LYMPHOCYTIC LEUKAEMIA
     Route: 048
  2. FLOMOXEF [Concomitant]
  3. IMIPENEM [Concomitant]
  4. FLUCONAZOLE [Concomitant]
  5. AZATHIOPRINE [Concomitant]
  6. CYCLOSERINE [Concomitant]
  7. ARBEKACIN [Concomitant]
  8. METHYLPHENIDATE HCL [Concomitant]
     Indication: HYPERKINESIA
     Dosage: UNK UKN, UNK
     Route: 048
  9. VORICONAZOLE [Concomitant]
  10. ITRACONAZOLE [Concomitant]
  11. MINOCYCLINE HCL [Concomitant]
  12. AMPHOTERICIN B [Concomitant]

REACTIONS (2)
  - PANCREATITIS ACUTE [None]
  - CARDIO-RESPIRATORY ARREST [None]
